FAERS Safety Report 7280803-9 (Version None)
Quarter: 2011Q1

REPORT INFORMATION
  Report Type: 
  Country: None (occurrence: None)
  Receive Date: 20110208
  Receipt Date: 20110131
  Transmission Date: 20110831
  Serious: Yes (Other)
  Sender: FDA-Public Use
  Company Number: JP-JNJFOC-20110201654

PATIENT
  Age: 81 Year
  Sex: Male

DRUGS (2)
  1. CONIEL [Concomitant]
     Route: 065
  2. CRAVIT [Suspect]
     Indication: BRONCHITIS
     Route: 048

REACTIONS (2)
  - BALANITIS [None]
  - INAPPROPRIATE SCHEDULE OF DRUG ADMINISTRATION [None]
